FAERS Safety Report 21397374 (Version 1)
Quarter: 2022Q3

REPORT INFORMATION
  Report Type: Spontaneous
  Country: US (occurrence: None)
  Receive Date: 20220929
  Receipt Date: 20220929
  Transmission Date: 20221026
  Serious: Yes (Hospitalization)
  Sender: FDA-Public Use
  Company Number: None

PATIENT
  Sex: Male

DRUGS (2)
  1. OPSUMIT [Suspect]
     Active Substance: MACITENTAN
     Indication: Pulmonary arterial hypertension
     Dosage: 10MG DAILY ORAL?
     Route: 048
     Dates: start: 202207
  2. OPSUMIT [Suspect]
     Active Substance: MACITENTAN

REACTIONS (4)
  - Dyspnoea [None]
  - Oedema [None]
  - Weight increased [None]
  - Pulmonary arterial hypertension [None]
